FAERS Safety Report 6469491-9 (Version None)
Quarter: 2009Q4

REPORT INFORMATION
  Report Type: 
  Country: None (occurrence: None)
  Receive Date: 20091203
  Receipt Date: 20091203
  Transmission Date: 20100525
  Serious: Yes (Other)
  Sender: FDA-Public Use
  Company Number: ES-ROXANE LABORATORIES, INC.-2009-DE-07025GD

PATIENT
  Age: 37 Year
  Sex: Female

DRUGS (2)
  1. BISOLVON COMPOSITUM [Suspect]
     Indication: NASOPHARYNGITIS
     Dosage: BROMHEXINE HYDROCHLORIDE 7.5 MG, DIPHENHYDRAMINE HYDROCHLORIDE  22.5 MG, EPHEDRINE HYDROCHLORIDE 22.
  2. CODEINE [Suspect]
     Indication: ALLERGY TEST
     Dosage: 15 MG
     Route: 048

REACTIONS (4)
  - EYELID OEDEMA [None]
  - LIP OEDEMA [None]
  - PRURITUS [None]
  - RASH GENERALISED [None]
